FAERS Safety Report 22592578 (Version 1)
Quarter: 2023Q2

REPORT INFORMATION
  Report Type: Spontaneous
  Country: US (occurrence: US)
  Receive Date: 20230613
  Receipt Date: 20230613
  Transmission Date: 20230722
  Serious: Yes (Other)
  Sender: FDA-Public Use
  Company Number: US-Shilpa Medicare Limited-SML-US-2023-00770

PATIENT
  Age: 60 Year
  Sex: Female

DRUGS (2)
  1. CAPECITABINE [Suspect]
     Active Substance: CAPECITABINE
     Indication: Triple negative breast cancer
     Dosage: 1250 MG/M2 TWICE DAILY ON DAYS 1 TO 14 EVERY 3 WEEKS.
     Route: 065
  2. TRIAMCINOLONE ACETONIDE [Suspect]
     Active Substance: TRIAMCINOLONE ACETONIDE
     Indication: Lichenoid keratosis
     Dosage: 0.1 PERCENT, TWICE DAILY
     Route: 065

REACTIONS (4)
  - Rash pruritic [Unknown]
  - Dermatitis acneiform [Unknown]
  - Poikiloderma [Unknown]
  - Dermatomyositis [Unknown]
